FAERS Safety Report 10340754 (Version 1)
Quarter: 2014Q3

REPORT INFORMATION
  Report Type: Spontaneous
  Country: CN (occurrence: CN)
  Receive Date: 20140724
  Receipt Date: 20140724
  Transmission Date: 20150326
  Serious: Yes (Other)
  Sender: FDA-Public Use
  Company Number: CN-009507513-1407CHN009259

PATIENT
  Age: 54 Year
  Sex: Male

DRUGS (2)
  1. LENTINAN [Concomitant]
     Active Substance: LENTINAN
  2. INTRON A [Suspect]
     Active Substance: INTERFERON ALFA-2B
     Indication: HODGKIN^S DISEASE
     Dosage: 900 MIU, QOD
     Route: 058
     Dates: start: 20140712, end: 20140716

REACTIONS (2)
  - Shock [Unknown]
  - Off label use [Unknown]

NARRATIVE: CASE EVENT DATE: 20140712
